FAERS Safety Report 24288312 (Version 9)
Quarter: 2025Q2

REPORT INFORMATION
  Report Type: Report from Study
  Country: US (occurrence: US)
  Receive Date: 20240905
  Receipt Date: 20250618
  Transmission Date: 20250717
  Serious: Yes (Other)
  Sender: SUNOVION
  Company Number: US-SUMITOMO PHARMA SWITZERLAND GMBH-2024SPA001418

PATIENT

DRUGS (4)
  1. ORGOVYX [Suspect]
     Active Substance: RELUGOLIX
     Indication: Prostate cancer
     Route: 048
     Dates: start: 20240716, end: 20240716
  2. ORGOVYX [Suspect]
     Active Substance: RELUGOLIX
     Dosage: 120 MG, QD
     Route: 048
     Dates: start: 20240717
  3. LYNPARZA [Concomitant]
     Active Substance: OLAPARIB
     Indication: Prostate cancer
     Dosage: 300 MG, QD
     Route: 065
     Dates: start: 20250222
  4. ABIRATERONE [Concomitant]
     Active Substance: ABIRATERONE
     Route: 065

REACTIONS (11)
  - Diabetes mellitus [Unknown]
  - Prostate cancer [Unknown]
  - Discomfort [Unknown]
  - Activities of daily living decreased [Unknown]
  - Nausea [Unknown]
  - Fatigue [Unknown]
  - Hot flush [Recovering/Resolving]
  - Asthenia [Unknown]
  - Anaemia [Unknown]
  - Headache [Unknown]
  - Incorrect dose administered [Unknown]
